FAERS Safety Report 17018641 (Version 1)
Quarter: 2019Q4

REPORT INFORMATION
  Report Type: Spontaneous
  Country: GB (occurrence: GB)
  Receive Date: 20191111
  Receipt Date: 20191111
  Transmission Date: 20200122
  Serious: Yes (Life-Threatening, Hospitalization, Other)
  Sender: FDA-Public Use
  Company Number: GB-AUROBINDO-AUR-APL-2019-071020

PATIENT
  Age: 55 Year
  Sex: Male
  Weight: 73.47 kg

DRUGS (2)
  1. SIMVASTATIN. [Concomitant]
     Active Substance: SIMVASTATIN
     Indication: PRODUCT USED FOR UNKNOWN INDICATION
     Dosage: UNK
     Route: 065
  2. RAMIPRIL. [Suspect]
     Active Substance: RAMIPRIL
     Indication: HYPERTENSION
     Dosage: 10 MILLIGRAM
     Route: 048
     Dates: start: 20150601, end: 20161001

REACTIONS (7)
  - Pericarditis [Recovered/Resolved]
  - Arteriosclerosis [Recovered/Resolved]
  - Hyperhidrosis [Recovered/Resolved with Sequelae]
  - Chest pain [Recovered/Resolved with Sequelae]
  - Angina pectoris [Recovered/Resolved with Sequelae]
  - Heart rate irregular [Recovered/Resolved]
  - Feeling jittery [Recovered/Resolved with Sequelae]

NARRATIVE: CASE EVENT DATE: 20160501
